FAERS Safety Report 13374264 (Version 2)
Quarter: 2017Q2

REPORT INFORMATION
  Report Type: Spontaneous
  Country: US (occurrence: US)
  Receive Date: 20170327
  Receipt Date: 20170412
  Transmission Date: 20170830
  Serious: No
  Sender: FDA-Public Use
  Company Number: US-TAIHO ONCOLOGY INC-EU-2017-00492

PATIENT
  Age: 69 Year
  Sex: Male

DRUGS (1)
  1. LONSURF [Suspect]
     Active Substance: TIPIRACIL HYDROCHLORIDE\TRIFLURIDINE
     Indication: COLON CANCER
     Route: 048
     Dates: start: 20170313

REACTIONS (4)
  - Asthenia [Recovered/Resolved]
  - Cytopenia [Unknown]
  - Iron deficiency anaemia [Unknown]
  - Malaise [Unknown]

NARRATIVE: CASE EVENT DATE: 2017
